FAERS Safety Report 9265900 (Version 1)
Quarter: 2013Q2

REPORT INFORMATION
  Report Type: Spontaneous
  Country: GB (occurrence: GB)
  Receive Date: 20130501
  Receipt Date: 20130501
  Transmission Date: 20140414
  Serious: Yes (Other)
  Sender: FDA-Public Use
  Company Number: GB-UCBSA-084713

PATIENT
  Age: 15 Year
  Sex: Male

DRUGS (2)
  1. EQUASYM XL [Suspect]
     Dosage: UNKNOWN DOSE
  2. EQUASYM XL [Suspect]
     Dosage: OVERDOSE

REACTIONS (2)
  - Suicide attempt [Unknown]
  - Intentional overdose [Unknown]
